FAERS Safety Report 7552332-6 (Version None)
Quarter: 2011Q2

REPORT INFORMATION
  Report Type: 
  Country: None (occurrence: None)
  Receive Date: 20110616
  Receipt Date: 20061030
  Transmission Date: 20111010
  Serious: Yes (Hospitalization, Other)
  Sender: FDA-Public Use
  Company Number: PHFR2006GB02694

PATIENT
  Sex: Male

DRUGS (2)
  1. ALCOHOL [Concomitant]
     Route: 065
  2. CLOZAPINE [Suspect]
     Indication: SCHIZOPHRENIA
     Route: 048
     Dates: start: 19950220

REACTIONS (10)
  - DRUG ABUSE [None]
  - FULL BLOOD COUNT INCREASED [None]
  - SINUS TACHYCARDIA [None]
  - AGITATION [None]
  - HYPERTENSION [None]
  - HYPERHIDROSIS [None]
  - ALANINE AMINOTRANSFERASE INCREASED [None]
  - BLOOD CALCIUM INCREASED [None]
  - HALLUCINATION, VISUAL [None]
  - GAMMA-GLUTAMYLTRANSFERASE INCREASED [None]
